FAERS Safety Report 10896816 (Version 1)
Quarter: 2015Q1

REPORT INFORMATION
  Report Type: Spontaneous
  Country: US (occurrence: US)
  Receive Date: 20150309
  Receipt Date: 20150309
  Transmission Date: 20150721
  Serious: Yes (Death)
  Sender: FDA-Public Use
  Company Number: US-BANPHARM-20153685

PATIENT
  Age: 30 Year
  Sex: Male

DRUGS (6)
  1. HEROIN [Suspect]
     Active Substance: DIACETYLMORPHINE
  2. ETHANOL [Suspect]
     Active Substance: ALCOHOL
  3. DIPHENHYDRAMINE UNKNOWN PRODUCT [Suspect]
     Active Substance: DIPHENHYDRAMINE
  4. HYDROCODONE [Suspect]
     Active Substance: HYDROCODONE
  5. NICOTINE. [Suspect]
     Active Substance: NICOTINE
  6. CAFFEINE. [Suspect]
     Active Substance: CAFFEINE

REACTIONS (1)
  - Drug abuse [Fatal]
